FAERS Safety Report 18153621 (Version 1)
Quarter: 2020Q3

REPORT INFORMATION
  Report Type: Report from Study
  Country: CA (occurrence: CA)
  Receive Date: 20200816
  Receipt Date: 20200816
  Transmission Date: 20201103
  Serious: Yes (Other)
  Sender: FDA-Public Use
  Company Number: CA-BIOGEN-2020BI00910358

PATIENT
  Sex: Male

DRUGS (1)
  1. TYSABRI [Suspect]
     Active Substance: NATALIZUMAB
     Indication: MULTIPLE SCLEROSIS
     Route: 042
     Dates: start: 20111117

REACTIONS (5)
  - Alcohol abuse [Unknown]
  - Suicide attempt [Unknown]
  - Drug dependence [Unknown]
  - Depression [Unknown]
  - Depressed mood [Unknown]
